FAERS Safety Report 9045263 (Version 1)
Quarter: 2013Q1

REPORT INFORMATION
  Report Type: Report from Study
  Country: US (occurrence: US)
  Receive Date: 20130131
  Receipt Date: 20130131
  Transmission Date: 20140127
  Serious: No
  Sender: FDA-Public Use
  Company Number: US-ABBOTT-12P-163-0991116-00

PATIENT
  Age: 37 Year
  Sex: Female

DRUGS (10)
  1. HUMIRA [Suspect]
     Indication: CROHN^S DISEASE
     Dosage: 06 SEP 2012: 160MG LOADING DOSE; 21 SEP 2012: 80MG
     Dates: start: 20120906
  2. PREDNISONE [Concomitant]
     Indication: PRODUCT USED FOR UNKNOWN INDICATION
     Dosage: TAPERING DOSE TO 5MG EVERY DAY
  3. CLARITIN [Concomitant]
     Indication: SINUS DISORDER
  4. CELEXA [Concomitant]
     Indication: NERVOUS SYSTEM DISORDER
  5. CELEXA [Concomitant]
     Indication: MOOD SWINGS
  6. IMPRIM [Concomitant]
     Indication: ABDOMINAL PAIN UPPER
     Dosage: AT BEDTIME
  7. MOBIC [Concomitant]
     Indication: MYALGIA
  8. AMBIEN [Concomitant]
     Indication: INSOMNIA
     Dosage: AT BEDTIME
  9. ULTRAM [Concomitant]
     Indication: PAIN
  10. ACTOS [Concomitant]
     Indication: BLOOD GLUCOSE ABNORMAL

REACTIONS (15)
  - Mass [Not Recovered/Not Resolved]
  - Inappropriate schedule of drug administration [Unknown]
  - Nasopharyngitis [Unknown]
  - Vomiting [Unknown]
  - Pyrexia [Unknown]
  - Productive cough [Unknown]
  - Diarrhoea [Unknown]
  - Pain in extremity [Unknown]
  - Headache [Unknown]
  - Gout [Unknown]
  - Increased upper airway secretion [Unknown]
  - Dyspnoea [Unknown]
  - Laboratory test abnormal [Unknown]
  - Drug ineffective [Unknown]
  - Fatigue [Unknown]
